FAERS Safety Report 10523789 (Version 1)
Quarter: 2014Q4

REPORT INFORMATION
  Report Type: Spontaneous
  Country: US (occurrence: None)
  Receive Date: 20141015
  Receipt Date: 20141015
  Transmission Date: 20150528
  Serious: No
  Sender: FDA-Public Use
  Company Number: None

PATIENT
  Age: 69 Year
  Sex: Female
  Weight: 50.8 kg

DRUGS (10)
  1. D-3 [Concomitant]
     Active Substance: CHOLECALCIFEROL
  2. OMEGA 3 [Concomitant]
     Active Substance: OMEGA-3 FATTY ACIDS
  3. BIOTIN [Concomitant]
     Active Substance: BIOTIN
  4. MAGNESIUM [Concomitant]
     Active Substance: MAGNESIUM
  5. CALCIUM [Concomitant]
     Active Substance: CALCIUM
  6. OXYTROL FOR WOMEN [Suspect]
     Active Substance: OXYBUTYNIN
     Indication: POLLAKIURIA
     Dosage: ONE PATCH IS WORN FOR 4 DAYS PATCH APPLIED TO BUTTOCKS OR ABDOMEN
     Dates: start: 20140506, end: 20140701
  7. IBUPROFEN OR ALEVE [Concomitant]
  8. TRAMADOL [Concomitant]
     Active Substance: TRAMADOL
  9. FISH OIL [Concomitant]
     Active Substance: FISH OIL
  10. LUTEIN [Concomitant]
     Active Substance: LUTEIN

REACTIONS (1)
  - Urinary retention [None]

NARRATIVE: CASE EVENT DATE: 201406
